FAERS Safety Report 10051038 (Version 1)
Quarter: 2014Q2

REPORT INFORMATION
  Report Type: Spontaneous
  Country: US (occurrence: US)
  Receive Date: 20140401
  Receipt Date: 20140401
  Transmission Date: 20141212
  Serious: Yes (Other)
  Sender: FDA-Public Use
  Company Number: US-B.I. PHARMACEUTICALS,INC./RIDGEFIELD-2014-BI-13888BP

PATIENT
  Sex: Female
  Weight: 49 kg

DRUGS (6)
  1. MIRAPEX [Suspect]
     Indication: PARKINSON^S DISEASE
     Dosage: 6 MG
     Route: 048
     Dates: start: 200505, end: 20140308
  2. MIRAPEX [Suspect]
     Indication: PARKINSON^S DISEASE
     Dosage: 3 MG
     Route: 048
     Dates: start: 20140309
  3. SINEMET [Concomitant]
     Indication: PARKINSONISM
     Dosage: DOSE PER APPLICATION:25 MG/100 MG; DAILY DOSE: 100 MG/400 MG
     Route: 048
     Dates: start: 2005
  4. COMTAM [Concomitant]
     Indication: PARKINSONISM
     Dosage: 500 MG
     Route: 048
     Dates: start: 2010
  5. TIMOLOL [Concomitant]
     Indication: GLAUCOMA
     Route: 065
  6. LATANOPROST [Concomitant]
     Indication: GLAUCOMA
     Route: 065

REACTIONS (8)
  - Squamous cell carcinoma [Recovered/Resolved]
  - Tremor [Not Recovered/Not Resolved]
  - Incontinence [Not Recovered/Not Resolved]
  - Panic attack [Not Recovered/Not Resolved]
  - Abnormal loss of weight [Recovered/Resolved]
  - Urinary retention [Not Recovered/Not Resolved]
  - Visual impairment [Not Recovered/Not Resolved]
  - Asthenia [Not Recovered/Not Resolved]
